FAERS Safety Report 15324080 (Version 6)
Quarter: 2025Q3

REPORT INFORMATION
  Report Type: Report from Study
  Country: EU (occurrence: EU)
  Receive Date: 20180828
  Receipt Date: 20250925
  Transmission Date: 20251021
  Serious: Yes (Death, Other)
  Sender: PURDUE
  Company Number: EU-MLMSERVICE-20180423-0801672-1

PATIENT
  Age: 36 Year
  Sex: Male

DRUGS (16)
  1. MORPHINE SULFATE [Suspect]
     Active Substance: MORPHINE SULFATE
     Indication: Product used for unknown indication
     Route: 065
  2. MORPHINE SULFATE [Suspect]
     Active Substance: MORPHINE SULFATE
     Route: 065
  3. TRAZODONE HYDROCHLORIDE [Suspect]
     Active Substance: TRAZODONE HYDROCHLORIDE
     Indication: Intentional product misuse
     Route: 065
  4. TRAZODONE HYDROCHLORIDE [Suspect]
     Active Substance: TRAZODONE HYDROCHLORIDE
     Route: 065
  5. PREGABALIN [Suspect]
     Active Substance: PREGABALIN
     Indication: Intentional product misuse
     Route: 065
  6. PREGABALIN [Suspect]
     Active Substance: PREGABALIN
     Route: 065
  7. ALPRAZOLAM [Suspect]
     Active Substance: ALPRAZOLAM
     Indication: Intentional product misuse
     Route: 065
  8. MIRTAZAPINE [Suspect]
     Active Substance: MIRTAZAPINE
     Indication: Intentional product misuse
     Route: 048
  9. MIRTAZAPINE [Suspect]
     Active Substance: MIRTAZAPINE
     Route: 048
  10. CLONAZEPAM [Suspect]
     Active Substance: CLONAZEPAM
     Indication: Intentional product misuse
     Route: 065
  11. CLONAZEPAM [Suspect]
     Active Substance: CLONAZEPAM
     Route: 065
  12. LEVOMEPROMAZINE [Suspect]
     Active Substance: LEVOMEPROMAZINE
     Indication: Intentional product misuse
     Route: 065
  13. LEVOMEPROMAZINE [Suspect]
     Active Substance: LEVOMEPROMAZINE
     Route: 065
  14. COCAINE [Suspect]
     Active Substance: COCAINE
     Indication: Product used for unknown indication
     Route: 065
  15. COCAINE [Suspect]
     Active Substance: COCAINE
     Route: 065
  16. ALCOHOL [Suspect]
     Active Substance: ALCOHOL
     Indication: Product used for unknown indication
     Route: 065

REACTIONS (3)
  - Drug abuse [Fatal]
  - Acute pulmonary oedema [Fatal]
  - Intentional product misuse [Fatal]

NARRATIVE: CASE EVENT DATE: 20150601
